FAERS Safety Report 5534451-9 (Version None)
Quarter: 2007Q4

REPORT INFORMATION
  Report Type: 
  Country: None (occurrence: None)
  Receive Date: 20071205
  Receipt Date: 20071128
  Transmission Date: 20080405
  Serious: Yes (Death, Hospitalization)
  Sender: FDA-Public Use
  Company Number: B0496487A

PATIENT
  Age: 74 Year
  Sex: Male

DRUGS (2)
  1. TOPOTECAN [Suspect]
     Dosage: 3.96MG PER DAY
     Dates: start: 20071030, end: 20071101
  2. CISPLATIN [Suspect]
     Dosage: 99MG PER DAY
     Dates: start: 20071001

REACTIONS (4)
  - FATIGUE [None]
  - FEBRILE NEUTROPENIA [None]
  - MALAISE [None]
  - NAUSEA [None]
